FAERS Safety Report 14952466 (Version 1)
Quarter: 2018Q2

REPORT INFORMATION
  Report Type: Spontaneous
  Country: US (occurrence: US)
  Receive Date: 20180530
  Receipt Date: 20180530
  Transmission Date: 20180711
  Serious: No
  Sender: FDA-Public Use
  Company Number: US-PFIZER INC-2015047247

PATIENT
  Sex: Female
  Weight: 86.17 kg

DRUGS (4)
  1. ADVIL [Suspect]
     Active Substance: IBUPROFEN
     Indication: SPINAL DISORDER
     Dosage: 2 DF, 3X/DAY (2 IN THE AM, 2 IN THE EVENING, AND 2 IN THE PM)
  2. ADVIL [Suspect]
     Active Substance: IBUPROFEN
     Indication: BACK PAIN
     Dosage: 1600 MG, DAILY [TOTAL OF 8 IN A DAY]
     Route: 048
  3. ADVIL [Suspect]
     Active Substance: IBUPROFEN
     Indication: SPINAL COLUMN STENOSIS
     Dosage: 1200 MG, DAILY [TAKES 2 BY MOUTH EVERY 4 HOURS IN A 12 HOUR PERIOD-TOTAL OF 6 DAILY]
     Route: 048
  4. CYCLOBENZAPRINE. [Concomitant]
     Active Substance: CYCLOBENZAPRINE
     Indication: MUSCLE SPASMS
     Dosage: 10 MG, AS NEEDED [ONE TABLET AT BEDTIME AS NEEDED/STARTED TAKING 6 MONTHS AGO]

REACTIONS (5)
  - Blood disorder [Unknown]
  - Intentional overdose [Unknown]
  - Overweight [Unknown]
  - Product use issue [Not Recovered/Not Resolved]
  - Wrong technique in product usage process [Unknown]
